FAERS Safety Report 5616547-6 (Version None)
Quarter: 2008Q1

REPORT INFORMATION
  Report Type: 
  Country: None (occurrence: None)
  Receive Date: 20080204
  Receipt Date: 20080129
  Transmission Date: 20080703
  Serious: Yes (Death)
  Sender: FDA-Public Use
  Company Number: 2008SP002231

PATIENT
  Age: 55 Year
  Sex: Female
  Weight: 63 kg

DRUGS (7)
  1. PEGETRON (PEGINTERFERON ALFA-2B W/RIBAVIRIN) (PEGYLATED INTERFERON ALF [Suspect]
     Dosage: 80 MCG; QW; SC; PO
     Route: 058
  2. PEGETRON (PEGINTERFERON ALFA-2B W/RIBAVIRIN) (PEGYLATED INTERFERON ALF [Suspect]
     Dosage: 80 MCG; QW; SC; PO
     Route: 058
  3. AZATHIOPRINE [Concomitant]
  4. PREDNISONE TAB [Concomitant]
  5. FOLIC ACID [Concomitant]
  6. GABAPENTIN [Concomitant]
  7. FUROSEMIDE [Concomitant]

REACTIONS (3)
  - HYPOKALAEMIA [None]
  - NEUTROPENIA [None]
  - PNEUMONIA [None]
